FAERS Safety Report 22096787 (Version 2)
Quarter: 2023Q1

REPORT INFORMATION
  Report Type: Report from Study
  Country: CA (occurrence: CA)
  Receive Date: 20230315
  Receipt Date: 20230322
  Transmission Date: 20230417
  Serious: Yes (Death)
  Sender: FDA-Public Use
  Company Number: CA-drreddys-CLI/CAN/23/0162267

PATIENT
  Age: 88 Year
  Sex: Male

DRUGS (1)
  1. ABIRATERONE [Suspect]
     Active Substance: ABIRATERONE
     Indication: Neoplasm malignant
     Route: 048
     Dates: start: 20221117

REACTIONS (1)
  - Death [Fatal]
